FAERS Safety Report 10070298 (Version 1)
Quarter: 2014Q2

REPORT INFORMATION
  Report Type: Spontaneous
  Country: US (occurrence: US)
  Receive Date: 20140410
  Receipt Date: 20140410
  Transmission Date: 20141212
  Serious: Yes (Death, Other)
  Sender: FDA-Public Use
  Company Number: US-PFIZER INC-2014100135

PATIENT
  Age: 80 Year
  Sex: Male

DRUGS (2)
  1. GABAPENTIN [Suspect]
     Indication: ANXIETY
     Dosage: 200 MG, 2X/DAY
     Dates: end: 20140312
  2. GABAPENTIN [Suspect]
     Dosage: 400 MG, 2X/DAY
     Dates: start: 20140312

REACTIONS (5)
  - Off label use [Fatal]
  - Death [Fatal]
  - Drug ineffective for unapproved indication [Unknown]
  - Balance disorder [Unknown]
  - Dysarthria [Unknown]
